FAERS Safety Report 11469585 (Version 4)
Quarter: 2015Q4

REPORT INFORMATION
  Report Type: Spontaneous
  Country: FR (occurrence: FR)
  Receive Date: 20150908
  Receipt Date: 20151016
  Transmission Date: 20160304
  Serious: Yes (Disabling, Other)
  Sender: FDA-Public Use
  Company Number: FR-ASTRAZENECA-2015SE85478

PATIENT
  Age: 831 Month
  Sex: Female

DRUGS (3)
  1. FASLODEX [Suspect]
     Active Substance: FULVESTRANT
     Indication: BREAST CANCER METASTATIC
     Route: 030
     Dates: start: 201502, end: 201509
  2. NOVONORM [Concomitant]
     Active Substance: REPAGLINIDE
  3. LEXOMIL [Concomitant]
     Active Substance: BROMAZEPAM

REACTIONS (12)
  - Cystitis [Recovered/Resolved]
  - Malignant neoplasm progression [Unknown]
  - Hypertension [Recovered/Resolved]
  - Asthenia [Not Recovered/Not Resolved]
  - Constipation [Not Recovered/Not Resolved]
  - Metastases to peripheral nervous system [Unknown]
  - Dry mouth [Not Recovered/Not Resolved]
  - Occipital neuralgia [Not Recovered/Not Resolved]
  - Pain [Unknown]
  - Sciatica [Recovered/Resolved]
  - Dysuria [Not Recovered/Not Resolved]
  - Depressed mood [Unknown]

NARRATIVE: CASE EVENT DATE: 2015
